FAERS Safety Report 10186220 (Version 2)
Quarter: 2014Q4

REPORT INFORMATION
  Report Type: Report from Study
  Country: US (occurrence: US)
  Receive Date: 20140521
  Receipt Date: 20141008
  Transmission Date: 20150528
  Serious: Yes (Hospitalization, Other)
  Sender: FDA-Public Use
  Company Number: US-BRISTOL-MYERS SQUIBB COMPANY-20743159

PATIENT
  Age: 58 Year
  Sex: Female
  Weight: 68.7 kg

DRUGS (1)
  1. IPILIMUMAB [Suspect]
     Active Substance: IPILIMUMAB
     Indication: MALIGNANT MELANOMA
     Dosage: 3WEEKS-4DOSES.PER 12 WEEK OVER 90MINS:ON WEEKS 24,36,48,+60?COURSE:4?TOTAL ADMINISTERED:203.7MG.
     Route: 042
     Dates: start: 20140123, end: 20140327

REACTIONS (3)
  - Anaemia [Not Recovered/Not Resolved]
  - Atrial fibrillation [Not Recovered/Not Resolved]
  - Enterocolitis [Not Recovered/Not Resolved]

NARRATIVE: CASE EVENT DATE: 2014
